FAERS Safety Report 19093407 (Version 1)
Quarter: 2021Q2

REPORT INFORMATION
  Report Type: Spontaneous
  Country: US (occurrence: US)
  Receive Date: 20210405
  Receipt Date: 20210405
  Transmission Date: 20210717
  Serious: No
  Sender: FDA-Public Use
  Company Number: US-BAUSCH-BL-2021-007591

PATIENT
  Age: 22 Year
  Sex: Female

DRUGS (4)
  1. TRULANCE [Suspect]
     Active Substance: PLECANATIDE
     Indication: ABDOMINAL DISTENSION
  2. TRULANCE [Suspect]
     Active Substance: PLECANATIDE
     Indication: ABDOMINAL TENDERNESS
     Route: 048
     Dates: start: 202102, end: 202102
  3. TRULANCE [Suspect]
     Active Substance: PLECANATIDE
     Indication: CONSTIPATION
  4. MIRALAX [Concomitant]
     Active Substance: POLYETHYLENE GLYCOL 3350
     Indication: CONSTIPATION

REACTIONS (4)
  - Flatulence [Recovered/Resolved]
  - Feeling abnormal [Recovered/Resolved]
  - Hepatic enzyme abnormal [Unknown]
  - Abdominal distension [Recovered/Resolved]

NARRATIVE: CASE EVENT DATE: 202102
